FAERS Safety Report 8801987 (Version 2)
Quarter: 2015Q3

REPORT INFORMATION
  Report Type: Report from Study
  Country: US (occurrence: US)
  Receive Date: 20120921
  Receipt Date: 20150701
  Transmission Date: 20151125
  Serious: Yes (Death)
  Sender: FDA-Public Use
  Company Number: US-ROCHE-1123242

PATIENT
  Sex: Male

DRUGS (10)
  1. ANZEMET [Concomitant]
     Active Substance: DOLASETRON MESYLATE
     Route: 042
  2. LEUCOVORIN. [Concomitant]
     Active Substance: LEUCOVORIN
     Route: 042
  3. IRINOTECAN [Concomitant]
     Active Substance: IRINOTECAN
     Route: 042
  4. 5-FLUOROURACIL [Concomitant]
     Active Substance: FLUOROURACIL
     Dosage: IN LEFT UPPER ARM
     Route: 058
  5. MAGNESIUM SULFATE. [Concomitant]
     Active Substance: MAGNESIUM SULFATE
     Route: 065
  6. DECADRON [Concomitant]
     Active Substance: DEXAMETHASONE
     Route: 042
  7. LEUCOVORIN. [Concomitant]
     Active Substance: LEUCOVORIN
     Route: 042
  8. AVASTIN [Suspect]
     Active Substance: BEVACIZUMAB
     Indication: COLON CANCER
     Route: 042
     Dates: start: 20071022
  9. CALCIUM GLUCONATE. [Concomitant]
     Active Substance: CALCIUM GLUCONATE
     Route: 042
  10. OXALIPLATIN. [Concomitant]
     Active Substance: OXALIPLATIN
     Route: 042

REACTIONS (4)
  - Temperature intolerance [Unknown]
  - Death [Fatal]
  - Epistaxis [Unknown]
  - Nausea [Unknown]
